FAERS Safety Report 15375045 (Version 2)
Quarter: 2018Q4

REPORT INFORMATION
  Report Type: Spontaneous
  Country: IT (occurrence: IT)
  Receive Date: 20180912
  Receipt Date: 20181127
  Transmission Date: 20190204
  Serious: Yes (Hospitalization, Other)
  Sender: FDA-Public Use
  Company Number: IT-PFIZER INC-2018361630

PATIENT
  Age: 60 Year
  Sex: Female
  Weight: 60 kg

DRUGS (17)
  1. DELORAZEPAM [Suspect]
     Active Substance: DELORAZEPAM
     Dosage: 60 ML, UNK
     Route: 048
     Dates: start: 20180626, end: 20180626
  2. AMLODIPINE [Concomitant]
     Active Substance: AMLODIPINE BESYLATE
     Indication: HYPERTENSION
     Route: 048
  3. NOVORAPID [Concomitant]
     Active Substance: INSULIN ASPART
     Indication: INTENTIONAL SELF-INJURY
     Dosage: 30 IU, DAILY (10 IU, TID)
     Route: 065
     Dates: start: 20130626
  4. PANTOPRAZOLE [Concomitant]
     Active Substance: PANTOPRAZOLE
     Route: 048
  5. GLUCOPHAGE [Concomitant]
     Active Substance: METFORMIN HYDROCHLORIDE
     Indication: INTENTIONAL SELF-INJURY
     Dosage: 2550 MG, DAILY (850 MG, TID)
     Route: 048
     Dates: start: 20130626, end: 20130626
  6. CYCLOBENZAPRINE. [Concomitant]
     Active Substance: CYCLOBENZAPRINE
     Indication: INTENTIONAL SELF-INJURY
     Dosage: 30 MG, 1X/DAY
     Route: 048
     Dates: start: 20130626, end: 20130626
  7. LANTUS [Concomitant]
     Active Substance: INSULIN GLARGINE
     Dosage: 30 IU, UNK AT NIGHT
     Route: 058
     Dates: start: 20130626, end: 20130626
  8. NOVORAPID [Concomitant]
     Active Substance: INSULIN ASPART
     Dosage: 90 IU, UNK
     Route: 058
     Dates: start: 20180626, end: 20180626
  9. ACARBOSE. [Concomitant]
     Active Substance: ACARBOSE
     Dosage: 300 MG, DAILY (100 MG, TID)
     Route: 065
  10. TAVOR (LORAZEPAM) [Suspect]
     Active Substance: LORAZEPAM
     Indication: INTENTIONAL SELF-INJURY
     Dosage: 2 DF, SINGLE (ONCE)
     Route: 048
     Dates: start: 20130626, end: 20130626
  11. DELORAZEPAM [Suspect]
     Active Substance: DELORAZEPAM
     Indication: INTENTIONAL SELF-INJURY
     Dosage: 40 MG, SINGLE (ONCE)
     Route: 048
     Dates: start: 20130626, end: 20130626
  12. LANTUS [Concomitant]
     Active Substance: INSULIN GLARGINE
     Indication: INTENTIONAL SELF-INJURY
     Dosage: 26 IU, AT NIGHT
     Route: 065
     Dates: start: 20130626, end: 20130626
  13. ESIDREX [Concomitant]
     Active Substance: HYDROCHLOROTHIAZIDE
     Indication: INTENTIONAL SELF-INJURY
     Dosage: 25 MG, UNK
     Route: 065
     Dates: start: 20130626, end: 20130626
  14. TALOFEN [Suspect]
     Active Substance: PROMAZINE HYDROCHLORIDE
     Indication: INTENTIONAL SELF-INJURY
     Dosage: 30 ML, SINGLE (ONCE)
     Route: 048
     Dates: start: 20130626, end: 20130626
  15. ACETYLSALICYLIC ACID [Concomitant]
     Active Substance: ASPIRIN
     Dosage: UNK
     Route: 048
  16. OLMESARTAN MEDOXOMIL. [Concomitant]
     Active Substance: OLMESARTAN MEDOXOMIL
     Indication: HYPERTENSION
     Route: 048
  17. ATENOLOL. [Concomitant]
     Active Substance: ATENOLOL
     Indication: INTENTIONAL SELF-INJURY
     Dosage: 3 DF, 1X/DAY
     Route: 065
     Dates: start: 20130626, end: 20130626

REACTIONS (4)
  - Somnolence [Recovering/Resolving]
  - Intentional self-injury [Unknown]
  - Drug abuse [Recovering/Resolving]
  - Sopor [Unknown]

NARRATIVE: CASE EVENT DATE: 20130626
